FAERS Safety Report 23767860 (Version 1)
Quarter: 2024Q2

REPORT INFORMATION
  Report Type: Spontaneous
  Country: PL (occurrence: PL)
  Receive Date: 20240422
  Receipt Date: 20240422
  Transmission Date: 20240716
  Serious: Yes (Other)
  Sender: FDA-Public Use
  Company Number: PL-AMGEN-POLSP2024077468

PATIENT
  Age: 61 Year
  Sex: Female

DRUGS (4)
  1. VECTIBIX [Suspect]
     Active Substance: PANITUMUMAB
     Indication: Colorectal cancer metastatic
     Dosage: 6 MILLIGRAM/KILOGRAM (BODY WEIGHT 1 DAY)
     Route: 065
     Dates: start: 20230904
  2. LEVOFOLIC [Concomitant]
     Indication: Colorectal cancer metastatic
     Dosage: 100 MILLIGRAM/SQ. METER (2 HOUR INFUSION DAY 1-2)
     Route: 042
     Dates: start: 20230904
  3. FLUOROURACIL [Concomitant]
     Active Substance: FLUOROURACIL
     Indication: Colorectal cancer metastatic
     Dosage: 400 MILLIGRAM/SQ. METER (BOLUS DAY 1-2)
     Route: 042
     Dates: start: 20230904
  4. IRINOTECAN [Concomitant]
     Active Substance: IRINOTECAN
     Indication: Colorectal cancer metastatic
     Dosage: 180 MILLIGRAM/SQ. METER, DAY 1
     Route: 042
     Dates: start: 20230904

REACTIONS (5)
  - Colorectal cancer metastatic [Unknown]
  - Hypokalaemia [Unknown]
  - Rash pustular [Recovered/Resolved]
  - Diarrhoea [Unknown]
  - Therapy partial responder [Unknown]

NARRATIVE: CASE EVENT DATE: 20230901
